FAERS Safety Report 6575761-6 (Version None)
Quarter: 2010Q1

REPORT INFORMATION
  Report Type: 
  Country: None (occurrence: None)
  Receive Date: 20100209
  Receipt Date: 20100129
  Transmission Date: 20100710
  Serious: Yes (Life-Threatening)
  Sender: FDA-Public Use
  Company Number: DK-JNJFOC-20100201110

PATIENT
  Sex: Female
  Weight: 90 kg

DRUGS (8)
  1. BLINDED; GOLIMUMA [Suspect]
     Indication: COLITIS ULCERATIVE
     Route: 058
  2. BLINDED; GOLIMUMA [Suspect]
     Route: 058
  3. PLACEBO [Suspect]
     Indication: COLITIS ULCERATIVE
     Route: 058
  4. PLACEBO [Suspect]
     Route: 058
  5. IMUREL [Concomitant]
     Indication: COLITIS ULCERATIVE
     Route: 048
  6. ASACOL [Concomitant]
     Indication: COLITIS ULCERATIVE
     Route: 048
  7. PARACETAMOL [Concomitant]
     Route: 048
  8. TRADOLAN [Concomitant]
     Route: 048

REACTIONS (1)
  - BREAST NEOPLASM [None]
